FAERS Safety Report 19912670 (Version 1)
Quarter: 2021Q4

REPORT INFORMATION
  Report Type: Spontaneous
  Country: US (occurrence: US)
  Receive Date: 20211004
  Receipt Date: 20211004
  Transmission Date: 20220303
  Serious: Yes (Disabling)
  Sender: FDA-Public Use
  Company Number: US-SA-SAC20210924000099

PATIENT
  Age: 64 Year
  Sex: Female

DRUGS (1)
  1. AUBAGIO [Suspect]
     Active Substance: TERIFLUNOMIDE
     Indication: Multiple sclerosis
     Dosage: 14 MG, QD
     Route: 048
     Dates: start: 20180120

REACTIONS (4)
  - Fatigue [Unknown]
  - Loss of personal independence in daily activities [Unknown]
  - Cluster headache [Unknown]
  - Joint injury [Not Recovered/Not Resolved]

NARRATIVE: CASE EVENT DATE: 20210801
